FAERS Safety Report 5201492-0 (Version None)
Quarter: 2007Q1

REPORT INFORMATION
  Report Type: 
  Country: None (occurrence: None)
  Receive Date: 20070104
  Receipt Date: 20061220
  Transmission Date: 20070707
  Serious: Yes (Death)
  Sender: FDA-Public Use
  Company Number: 2006S1009815

PATIENT
  Age: 28 Year
  Sex: Male

DRUGS (4)
  1. CLOZAPINE [Suspect]
     Indication: SCHIZOPHRENIA, PARANOID TYPE
     Dosage: 400 MG HS PO
     Route: 048
     Dates: end: 20060909
  2. VALPROATE SODIUM [Concomitant]
  3. BENZTROPINE MESYLATE [Concomitant]
  4. LORAZEPAM [Concomitant]

REACTIONS (2)
  - APPENDICITIS [None]
  - SEPTIC SHOCK [None]
